FAERS Safety Report 6612688-5 (Version None)
Quarter: 2010Q1

REPORT INFORMATION
  Report Type: 
  Country: None (occurrence: None)
  Receive Date: 20100303
  Receipt Date: 20100205
  Transmission Date: 20100710
  Serious: No
  Sender: FDA-Public Use
  Company Number: US-BAYER-200934615NA

PATIENT
  Age: 55 Year
  Sex: Male
  Weight: 91 kg

DRUGS (3)
  1. ULTRAVIST 370 [Suspect]
     Indication: COMPUTERISED TOMOGRAM ABDOMEN
     Dosage: TOTAL DAILY DOSE: 150 ML  UNIT DOSE: 150 ML
     Route: 042
     Dates: start: 20090924, end: 20090924
  2. ALLOPURINOL [Concomitant]
  3. ORAL CONTRAST [Concomitant]
     Route: 048
     Dates: start: 20090924, end: 20090924

REACTIONS (6)
  - ERYTHEMA [None]
  - EYE SWELLING [None]
  - FLUSHING [None]
  - RASH [None]
  - SWELLING FACE [None]
  - URTICARIA [None]
